FAERS Safety Report 15037380 (Version 1)
Quarter: 2018Q2

REPORT INFORMATION
  Report Type: Spontaneous
  Country: SG (occurrence: SG)
  Receive Date: 20180620
  Receipt Date: 20180620
  Transmission Date: 20180711
  Serious: Yes (Other)
  Sender: FDA-Public Use
  Company Number: SG-MYLANLABS-2018M1042762

PATIENT
  Age: 51 Year
  Sex: Male
  Weight: 98 kg

DRUGS (2)
  1. LIDOCAINE. [Suspect]
     Active Substance: LIDOCAINE
     Indication: NERVE BLOCK
     Route: 065
  2. BUPIVACAINE. [Suspect]
     Active Substance: BUPIVACAINE
     Indication: NERVE BLOCK
     Route: 065

REACTIONS (3)
  - Respiratory distress [Recovering/Resolving]
  - Phrenic nerve paralysis [Recovering/Resolving]
  - Dyspnoea [Recovering/Resolving]
